FAERS Safety Report 9434318 (Version 1)
Quarter: 2013Q3

REPORT INFORMATION
  Report Type: Spontaneous
  Country: US (occurrence: None)
  Receive Date: 20130731
  Receipt Date: 20130731
  Transmission Date: 20140515
  Serious: No
  Sender: FDA-Public Use
  Company Number: None

PATIENT
  Age: 95 Year
  Sex: Female

DRUGS (10)
  1. BENICAR HCT [Suspect]
     Indication: HYPERTENSION
     Route: 048
     Dates: start: 20130510, end: 20130603
  2. LOSARTAN [Concomitant]
  3. NIFEDICAL [Concomitant]
  4. VITAMIN A [Concomitant]
  5. VITAMIN B [Concomitant]
  6. VITAMIN D 3 [Concomitant]
  7. LUTEIN [Concomitant]
  8. CALCIUM [Concomitant]
  9. MAGNESIUM [Concomitant]
  10. POTASSIUM [Concomitant]

REACTIONS (2)
  - Drug ineffective [None]
  - Eye disorder [None]
